FAERS Safety Report 25632821 (Version 1)
Quarter: 2025Q3

REPORT INFORMATION
  Report Type: Spontaneous
  Country: US (occurrence: US)
  Receive Date: 20250801
  Receipt Date: 20250801
  Transmission Date: 20251020
  Serious: No
  Sender: GRIFOLS
  Company Number: US-IGSA-BIG0033293

PATIENT
  Age: 38 Year
  Sex: Female
  Weight: 88.435 kg

DRUGS (35)
  1. GAMUNEX-C [Suspect]
     Active Substance: HUMAN IMMUNOGLOBULIN G
     Indication: Small fibre neuropathy
     Dosage: 1 GRAM PER KILOGRAM, Q.4WK.
     Route: 042
     Dates: start: 20250213, end: 20250213
  2. GAMUNEX-C [Suspect]
     Active Substance: HUMAN IMMUNOGLOBULIN G
     Indication: Postural orthostatic tachycardia syndrome
     Dates: start: 202208
  3. GAMUNEX-C [Suspect]
     Active Substance: HUMAN IMMUNOGLOBULIN G
     Indication: Eosinophilic granulomatosis with polyangiitis
     Dates: start: 2021
  4. GAMUNEX-C [Suspect]
     Active Substance: HUMAN IMMUNOGLOBULIN G
     Indication: Off label use
  5. TRAMADOL [Concomitant]
     Active Substance: TRAMADOL
     Indication: Premedication
     Route: 048
  6. TRAMADOL [Concomitant]
     Active Substance: TRAMADOL
     Indication: Small fibre neuropathy
  7. TRAMADOL [Concomitant]
     Active Substance: TRAMADOL
     Indication: Infusion related reaction
  8. TYLENOL [Concomitant]
     Active Substance: ACETAMINOPHEN
     Indication: Premedication
     Route: 048
  9. BENADRYL [Concomitant]
     Active Substance: DIPHENHYDRAMINE HYDROCHLORIDE
     Indication: Premedication
     Route: 048
  10. SODIUM CHLORIDE [Concomitant]
     Active Substance: SODIUM CHLORIDE
     Indication: Premedication
     Route: 042
  11. SODIUM CHLORIDE [Concomitant]
     Active Substance: SODIUM CHLORIDE
     Indication: Sinusitis
  12. ALBUTEROL [Concomitant]
     Active Substance: ALBUTEROL
     Indication: Eosinophilic granulomatosis with polyangiitis
  13. SODIUM CHLORIDE [Concomitant]
     Active Substance: SODIUM CHLORIDE
     Indication: Eosinophilic granulomatosis with polyangiitis
  14. NUCALA [Concomitant]
     Active Substance: MEPOLIZUMAB
     Indication: Eosinophilic granulomatosis with polyangiitis
  15. CELLCEPT [Concomitant]
     Active Substance: MYCOPHENOLATE MOFETIL
     Indication: Eosinophilic granulomatosis with polyangiitis
  16. METHYLPREDNISOLONE [Concomitant]
     Active Substance: METHYLPREDNISOLONE
     Indication: Eosinophilic granulomatosis with polyangiitis
  17. ATOVAQUONE [Concomitant]
     Active Substance: ATOVAQUONE
     Indication: Eosinophilic granulomatosis with polyangiitis
  18. ATOVAQUONE [Concomitant]
     Active Substance: ATOVAQUONE
     Indication: Prophylaxis
  19. RITUXAN [Concomitant]
     Active Substance: RITUXIMAB
     Indication: Eosinophilic granulomatosis with polyangiitis
  20. RITUXIMAB [Concomitant]
     Active Substance: RITUXIMAB
     Indication: Eosinophilic granulomatosis with polyangiitis
  21. AZELASTINE [Concomitant]
     Active Substance: AZELASTINE
     Indication: Sinusitis
  22. FLONASE SENSIMIST ALLERGY RELIEF [Concomitant]
     Active Substance: FLUTICASONE FUROATE
     Indication: Sinusitis
  23. MAGNESIUM CITRATE [Concomitant]
     Active Substance: MAGNESIUM CITRATE
     Indication: Small fibre neuropathy
  24. XIIDRA [Concomitant]
     Active Substance: LIFITEGRAST
     Indication: Dry eye
  25. HYDROXYCHLOROQUINE [Concomitant]
     Active Substance: HYDROXYCHLOROQUINE
     Indication: Undifferentiated connective tissue disease
  26. BOTOX [Concomitant]
     Active Substance: ONABOTULINUMTOXINA
     Indication: Migraine
  27. KETOROLAC [Concomitant]
     Active Substance: KETOROLAC TROMETHAMINE
     Indication: Migraine
  28. TRIAMCINOLONE [Concomitant]
     Active Substance: TRIAMCINOLONE
     Indication: Rash
  29. VITAMIN D NOS [Concomitant]
     Active Substance: CHOLECALCIFEROL\ERGOCALCIFEROL
     Indication: Vitamin D decreased
  30. VITAMIN B12 [Concomitant]
     Active Substance: CYANOCOBALAMIN
     Indication: Vitamin supplementation
  31. CALCIUM [Concomitant]
     Active Substance: CALCIUM
     Indication: Nutritional supplementation
  32. OMEGA 100 [Concomitant]
     Indication: Nutritional supplementation
  33. HERBALS\TURMERIC [Concomitant]
     Active Substance: HERBALS\TURMERIC
     Indication: Nutritional supplementation
  34. COLLAGEN [Concomitant]
     Active Substance: COLLAGEN
     Indication: Nutritional supplementation
  35. PROBIOTICS NOS [Concomitant]
     Active Substance: PROBIOTICS NOS
     Indication: Nutritional supplementation

REACTIONS (3)
  - Urticaria [Recovering/Resolving]
  - Pyrexia [Recovering/Resolving]
  - Epistaxis [Recovering/Resolving]

NARRATIVE: CASE EVENT DATE: 20250213
